FAERS Safety Report 9300515 (Version 2)
Quarter: 2013Q2

REPORT INFORMATION
  Report Type: Spontaneous
  Country: US (occurrence: US)
  Receive Date: 20130521
  Receipt Date: 20130604
  Transmission Date: 20140414
  Serious: Yes (Other)
  Sender: FDA-Public Use
  Company Number: US-BRISTOL-MYERS SQUIBB COMPANY-18894956

PATIENT
  Age: 62 Year
  Sex: Male

DRUGS (1)
  1. ABATACEPT SUBQ INJECTION 125MG/ML [Suspect]
     Dosage: LAST INJ:10MAY13.?REINTRODUCED
     Route: 058

REACTIONS (2)
  - Surgery [Unknown]
  - Drug ineffective [Unknown]
